FAERS Safety Report 11007062 (Version 2)
Quarter: 2016Q2

REPORT INFORMATION
  Report Type: Spontaneous
  Country: US (occurrence: US)
  Receive Date: 20150409
  Receipt Date: 20160415
  Transmission Date: 20160815
  Serious: No
  Sender: FDA-Public Use
  Company Number: US-ALLERGAN-1502990US

PATIENT
  Sex: Female

DRUGS (1)
  1. LATISSE [Suspect]
     Active Substance: BIMATOPROST
     Indication: GROWTH OF EYELASHES
     Dosage: 2 GTT, QHS
     Route: 061
     Dates: start: 20150123, end: 201502

REACTIONS (5)
  - Contusion [Recovered/Resolved]
  - Eye irritation [Recovered/Resolved]
  - Skin hyperpigmentation [Recovered/Resolved]
  - Scleral hyperaemia [Recovered/Resolved]
  - Eye pruritus [Recovered/Resolved]
